FAERS Safety Report 15860908 (Version 1)
Quarter: 2019Q1

REPORT INFORMATION
  Report Type: Spontaneous
  Country: US (occurrence: US)
  Receive Date: 20190124
  Receipt Date: 20190124
  Transmission Date: 20190417
  Serious: No
  Sender: FDA-Public Use
  Company Number: US-ELI_LILLY_AND_COMPANY-US201901010376

PATIENT
  Sex: Female

DRUGS (2)
  1. TRULICITY [Suspect]
     Active Substance: DULAGLUTIDE
     Indication: PRODUCT USED FOR UNKNOWN INDICATION
     Dosage: 0.75 MG, UNKNOWN
     Route: 065
     Dates: start: 2015
  2. RESTASIS [Concomitant]
     Active Substance: CYCLOSPORINE
     Indication: BLOOD GLUCOSE INCREASED

REACTIONS (4)
  - Blood glucose decreased [Unknown]
  - Dizziness [Unknown]
  - Hyperhidrosis [Unknown]
  - Cold sweat [Unknown]

NARRATIVE: CASE EVENT DATE: 2016
